FAERS Safety Report 20087499 (Version 1)
Quarter: 2021Q4

REPORT INFORMATION
  Report Type: Spontaneous
  Country: US (occurrence: None)
  Receive Date: 20211118
  Receipt Date: 20211118
  Transmission Date: 20220303
  Serious: Yes (Other)
  Sender: FDA-Public Use
  Company Number: None

PATIENT
  Age: 46 Year
  Sex: Female
  Weight: 49.8 kg

DRUGS (8)
  1. FOSAPREPITANT [Suspect]
     Active Substance: FOSAPREPITANT
     Indication: Nausea
     Dosage: OTHER FREQUENCY : ONCE;?
     Route: 042
     Dates: start: 20211115, end: 20211115
  2. Compazine 10 mg tabs [Concomitant]
     Dates: start: 20211108
  3. Zofran 8 mg tabs [Concomitant]
     Dates: start: 20211108
  4. CAPECITABINE [Concomitant]
     Active Substance: CAPECITABINE
     Dates: start: 20211109
  5. Decadron 4 mg/ml - 10 mg IV (pre-med) [Concomitant]
     Dates: start: 20211115
  6. Palonosetron 0.25 mg IV (pre-med) [Concomitant]
     Dates: start: 20211115
  7. Cisplatin 30 mg IVPB [Concomitant]
     Dates: start: 20211115
  8. Potassium chloride/Magnesium Sulfate in Dextrose 5%/NaCL 0.45% IV [Concomitant]
     Dates: start: 20211115

REACTIONS (7)
  - Feeling hot [None]
  - Erythema [None]
  - Hyperhidrosis [None]
  - Feeling abnormal [None]
  - Heart rate increased [None]
  - Back pain [None]
  - Pelvic pain [None]

NARRATIVE: CASE EVENT DATE: 20211115
